FAERS Safety Report 18439630 (Version 5)
Quarter: 2021Q4

REPORT INFORMATION
  Report Type: Report from Study
  Country: AR (occurrence: AR)
  Receive Date: 20201029
  Receipt Date: 20211009
  Transmission Date: 20220303
  Serious: Yes (Other)
  Sender: FDA-Public Use
  Company Number: NVSC2020AR273666

PATIENT
  Age: 55 Year
  Sex: Female

DRUGS (4)
  1. COSENTYX [Suspect]
     Active Substance: SECUKINUMAB
     Indication: Psoriasis
     Dosage: 150 MG, QMO
     Route: 058
     Dates: start: 20191031
  2. COSENTYX [Suspect]
     Active Substance: SECUKINUMAB
     Indication: Psoriatic arthropathy
     Dosage: 150 MG, QMO
     Route: 065
  3. COSENTYX [Suspect]
     Active Substance: SECUKINUMAB
     Dosage: 300 MG, QMO
     Route: 058
  4. INSULIN NOS [Concomitant]
     Active Substance: INSULIN NOS
     Indication: Diabetes mellitus
     Dosage: UNK (STARTED FROM 18 YEARS AGO)
     Route: 065

REACTIONS (15)
  - Eye haemorrhage [Unknown]
  - Psoriatic arthropathy [Unknown]
  - Diabetes mellitus [Unknown]
  - Visual impairment [Recovering/Resolving]
  - Urinary tract infection [Unknown]
  - Dysuria [Recovered/Resolved]
  - Pollakiuria [Recovered/Resolved]
  - Urine output decreased [Recovered/Resolved]
  - Blood glucose increased [Recovered/Resolved]
  - Psoriasis [Not Recovered/Not Resolved]
  - Pruritus [Unknown]
  - Pain [Unknown]
  - Incorrect dose administered [Unknown]
  - Inappropriate schedule of product administration [Unknown]
  - Drug ineffective [Unknown]

NARRATIVE: CASE EVENT DATE: 20191031
